FAERS Safety Report 7151667-9 (Version None)
Quarter: 2010Q4

REPORT INFORMATION
  Report Type: 
  Country: None (occurrence: None)
  Receive Date: 20101210
  Receipt Date: 20101207
  Transmission Date: 20110411
  Serious: Yes (Hospitalization, Congenital Anomaly, Other)
  Sender: FDA-Public Use
  Company Number: US-PFIZER INC-2010128165

PATIENT
  Sex: Female

DRUGS (6)
  1. ZOLOFT [Suspect]
     Indication: DEPRESSION
     Dosage: UNK
     Route: 064
  2. LEVOXYL [Concomitant]
     Dosage: 300 MG, EVERY DAY
  3. ANCEF [Concomitant]
     Dosage: 275 MG, UNK
  4. PROZAC [Concomitant]
     Dosage: 10 MG, DAILY
  5. KEFLEX [Concomitant]
     Dosage: 550 MG, UNK
  6. PRENATAL VITAMINS [Concomitant]
     Dosage: UNK

REACTIONS (20)
  - APHASIA [None]
  - ATRIAL SEPTAL DEFECT [None]
  - CARDIAC FAILURE CONGESTIVE [None]
  - CARDIAC MURMUR [None]
  - CARDIOMEGALY [None]
  - DEVELOPMENTAL DELAY [None]
  - DRUG EXPOSURE DURING PREGNANCY [None]
  - ERYTHEMA INFECTIOSUM [None]
  - FAILURE TO THRIVE [None]
  - HEART DISEASE CONGENITAL [None]
  - LUNG HYPERINFLATION [None]
  - OTITIS MEDIA ACUTE [None]
  - PNEUMONIA [None]
  - RESPIRATORY DISORDER [None]
  - RESPIRATORY FAILURE [None]
  - SKIN INJURY [None]
  - SPEECH DISORDER DEVELOPMENTAL [None]
  - UNDERWEIGHT [None]
  - UPPER RESPIRATORY TRACT INFECTION [None]
  - VENTRICULAR SEPTAL DEFECT [None]
